FAERS Safety Report 7597214-9 (Version None)
Quarter: 2011Q3

REPORT INFORMATION
  Report Type: 
  Country: None (occurrence: None)
  Receive Date: 20110708
  Receipt Date: 20100922
  Transmission Date: 20111222
  Serious: No
  Sender: FDA-Public Use
  Company Number: US-GLAXOSMITHKLINE-A0882656A

PATIENT
  Age: 76 Year
  Sex: Female

DRUGS (15)
  1. FLOVENT [Suspect]
     Indication: ASTHMA
     Dosage: 2PUFF TWICE PER DAY
     Route: 055
     Dates: start: 20100401
  2. FISH OIL [Concomitant]
  3. VENTOLIN HFA [Concomitant]
  4. FORTICAL [Concomitant]
  5. ACCOLATE [Concomitant]
  6. ZYRTEC [Concomitant]
  7. PROTONIX [Concomitant]
  8. ASPIRIN [Concomitant]
  9. LASIX [Concomitant]
  10. C-PAP [Concomitant]
  11. NEURONTIN [Concomitant]
  12. CALCIUM CARBONATE [Concomitant]
  13. POTASSIUM CHLORIDE [Concomitant]
  14. ALDACTAZIDE [Concomitant]
  15. TESSALON [Concomitant]

REACTIONS (4)
  - OROPHARYNGEAL PAIN [None]
  - CANDIDIASIS [None]
  - THROAT IRRITATION [None]
  - PRODUCT QUALITY ISSUE [None]
